FAERS Safety Report 6608784 (Version 33)
Quarter: 2014Q2

REPORT INFORMATION
  Report Type: Spontaneous
  Country: US (occurrence: US)
  Receive Date: 20080407
  Receipt Date: 20140416
  Transmission Date: 20141212
  Serious: Yes (Other)
  Sender: FDA-Public Use
  Company Number: PHEH2008US03143

PATIENT
  Age: 72 Year
  Sex: Male
  Weight: 77.55 kg

DRUGS (31)
  1. ZOMETA [Suspect]
     Indication: BONE CANCER
     Dosage: 4 MG,
     Route: 041
     Dates: start: 20050715, end: 20070103
  2. LUPRON [Concomitant]
  3. CASODEX [Concomitant]
  4. DECADRON #1 [Concomitant]
     Dosage: 10 MG, UNK
     Route: 042
     Dates: start: 20060207
  5. ZOFRAN [Concomitant]
     Dosage: 4 MG, UNK
     Route: 040
     Dates: start: 20061106
  6. AMOXICILLIN [Concomitant]
     Dates: start: 200710
  7. PERIDEX [Concomitant]
     Route: 049
     Dates: start: 200710
  8. NEXIUM [Concomitant]
  9. HYZAAR [Concomitant]
  10. ATENOLOL [Concomitant]
  11. OXYBUTYNIN [Concomitant]
  12. CELEBREX [Concomitant]
  13. DOXYCYCLINE [Concomitant]
  14. ADVICOR [Concomitant]
  15. DOXAZOSIN [Concomitant]
  16. VERELAN [Concomitant]
  17. ZYRTEC [Concomitant]
  18. DITROPAN XL [Concomitant]
  19. MEGESTROL ACETATE [Concomitant]
  20. OMEPRAZOLE [Concomitant]
  21. FEXOFENADINE [Concomitant]
  22. DETROL                                  /USA/ [Concomitant]
  23. ASPIRIN ^BAYER^ [Concomitant]
  24. LASIX [Concomitant]
  25. QUININE SULFATE [Concomitant]
  26. PRILOSEC [Concomitant]
  27. CARDURA [Concomitant]
  28. PRAVACHOL [Concomitant]
  29. COZAAR [Concomitant]
  30. VIOXX [Concomitant]
  31. RADIATION [Concomitant]

REACTIONS (139)
  - Nephrolithiasis [Unknown]
  - Urinary tract infection [Unknown]
  - Urine abnormality [Unknown]
  - Nocturia [Unknown]
  - Micturition urgency [Unknown]
  - Diverticulum intestinal [Unknown]
  - Peripheral vascular disorder [Unknown]
  - Oedema peripheral [Not Recovered/Not Resolved]
  - Arterial stenosis [Unknown]
  - Tricuspid valve incompetence [Unknown]
  - Dilatation atrial [Unknown]
  - Osteonecrosis of jaw [Unknown]
  - Pain [Unknown]
  - Infection [Unknown]
  - Scar [Unknown]
  - Injury [Unknown]
  - Emotional distress [Unknown]
  - Fatigue [Unknown]
  - Anxiety [Unknown]
  - Physical disability [Unknown]
  - Metastases to bone [Unknown]
  - Bone pain [Unknown]
  - Herpes zoster [Unknown]
  - Bone formation increased [Unknown]
  - Gynaecomastia [Unknown]
  - Prostatic specific antigen increased [Unknown]
  - Paraesthesia [Unknown]
  - Hearing impaired [Unknown]
  - Headache [Unknown]
  - Bone disorder [Unknown]
  - Glossodynia [Unknown]
  - Tongue ulceration [Unknown]
  - Loose tooth [Unknown]
  - Bone erosion [Unknown]
  - Nasal congestion [Unknown]
  - Gastrooesophageal reflux disease [Unknown]
  - Cough [Unknown]
  - Dysphonia [Unknown]
  - Mouth ulceration [Unknown]
  - Pain in jaw [Unknown]
  - Breath odour [Unknown]
  - Cerebral atrophy [Unknown]
  - Basal ganglia infarction [Unknown]
  - Subdural haematoma [Unknown]
  - Aortic arteriosclerosis [Unknown]
  - Pulmonary hypertension [Unknown]
  - Dyspepsia [Unknown]
  - Constipation [Unknown]
  - Sinusitis [Unknown]
  - Productive cough [Unknown]
  - Rhinitis allergic [Unknown]
  - Dyspnoea exertional [Unknown]
  - Musculoskeletal discomfort [Unknown]
  - Muscle spasms [Unknown]
  - Back pain [Unknown]
  - Intervertebral disc protrusion [Unknown]
  - Hypoaesthesia [Unknown]
  - Urinary incontinence [Unknown]
  - Insomnia [Unknown]
  - Blood alkaline phosphatase increased [Unknown]
  - Red blood cell count decreased [Unknown]
  - Haemoglobin decreased [Unknown]
  - Haematocrit decreased [Unknown]
  - Blood creatinine increased [Unknown]
  - Blood urea increased [Unknown]
  - Chest pain [Unknown]
  - Fall [Unknown]
  - Anaemia [Unknown]
  - Tobacco abuse [Unknown]
  - Obesity [Unknown]
  - Pain in extremity [Unknown]
  - Disorientation [Unknown]
  - Blood calcium decreased [Unknown]
  - Blood sodium decreased [Unknown]
  - Renal impairment [Unknown]
  - Vertebral foraminal stenosis [Unknown]
  - Arachnoid cyst [Unknown]
  - Myalgia [Unknown]
  - Convulsion [Unknown]
  - Lethargy [Unknown]
  - Stupor [Unknown]
  - Basal cell carcinoma [Unknown]
  - Polyp [Unknown]
  - Squamous cell carcinoma [Unknown]
  - Actinic keratosis [Unknown]
  - Second primary malignancy [Unknown]
  - Nail discolouration [Unknown]
  - Nail disorder [Unknown]
  - Oedema [Unknown]
  - Ingrowing nail [Unknown]
  - Onychomycosis [Unknown]
  - Deformity [Unknown]
  - Scarlet fever [Unknown]
  - Gingival bleeding [Unknown]
  - Sensitivity of teeth [Unknown]
  - Tooth abscess [Unknown]
  - Gingival swelling [Unknown]
  - Peripheral venous disease [Unknown]
  - Bladder outlet obstruction [Unknown]
  - Haemorrhage [Unknown]
  - Blister [Recovering/Resolving]
  - Chronic obstructive pulmonary disease [Unknown]
  - Amnesia [Not Recovered/Not Resolved]
  - Lymphocytic infiltration [Unknown]
  - Scleroderma [Unknown]
  - Ecchymosis [Unknown]
  - Cerebral small vessel ischaemic disease [Unknown]
  - Encephalomalacia [Unknown]
  - Deep vein thrombosis [Unknown]
  - Lung infiltration [Unknown]
  - Pulmonary oedema [Unknown]
  - Gait disturbance [Unknown]
  - Lordosis [Unknown]
  - Vertebral osteophyte [Unknown]
  - Eczema [Unknown]
  - Status epilepticus [Unknown]
  - Encephalopathy [Unknown]
  - Osteoarthritis [Unknown]
  - Carpal tunnel syndrome [Unknown]
  - Radiculitis cervical [Unknown]
  - Spinal cord compression [Unknown]
  - Pancytopenia [Unknown]
  - Head injury [Unknown]
  - Mobility decreased [Unknown]
  - Abasia [Unknown]
  - Urinary retention [Unknown]
  - Urinary tract obstruction [Unknown]
  - Suprapubic pain [Unknown]
  - Urosepsis [Unknown]
  - Asthenia [Unknown]
  - Renal failure chronic [Unknown]
  - Kidney small [Unknown]
  - Laceration [Unknown]
  - Arthralgia [Unknown]
  - Cerebral ventricle dilatation [Unknown]
  - Vision blurred [Unknown]
  - Tooth fracture [Unknown]
  - Discomfort [Unknown]
  - Bone lesion [Unknown]
